FAERS Safety Report 12695424 (Version 1)
Quarter: 2016Q3

REPORT INFORMATION
  Report Type: Spontaneous
  Country: US (occurrence: US)
  Receive Date: 20160829
  Receipt Date: 20160829
  Transmission Date: 20161109
  Serious: No
  Sender: FDA-Public Use
  Company Number: US-PFIZER INC-2016393365

PATIENT
  Sex: Female

DRUGS (1)
  1. MORPHINE SULFATE. [Suspect]
     Active Substance: MORPHINE SULFATE
     Indication: MIGRAINE
     Dosage: 15MG EXTENDED RELEASE

REACTIONS (1)
  - Somnolence [Unknown]
